FAERS Safety Report 9283162 (Version 2)
Quarter: 2013Q3

REPORT INFORMATION
  Report Type: Spontaneous
  Country: US (occurrence: US)
  Receive Date: 20130510
  Receipt Date: 20130829
  Transmission Date: 20140515
  Serious: Yes (Hospitalization)
  Sender: FDA-Public Use
  Company Number: US-ABBOTT-13P-163-1084710-00

PATIENT
  Age: 31 Year
  Sex: Male
  Weight: 102.6 kg

DRUGS (11)
  1. ANDROGEL [Suspect]
     Indication: BLOOD TESTOSTERONE DECREASED
     Route: 061
     Dates: start: 20120326, end: 20121029
  2. ANDROGEL [Suspect]
     Route: 061
     Dates: start: 20121029, end: 20130213
  3. EFFEXOR [Concomitant]
     Indication: BIPOLAR DISORDER
  4. MULTIVITAMIN [Concomitant]
     Indication: VITAMIN SUPPLEMENTATION
  5. VITAMIN B 12 [Concomitant]
     Indication: VITAMIN SUPPLEMENTATION
  6. VITAMIN B 6 [Concomitant]
     Indication: VITAMIN SUPPLEMENTATION
  7. VITAMIN C [Concomitant]
     Indication: VITAMIN SUPPLEMENTATION
  8. MAGNESIUM [Concomitant]
     Indication: MINERAL SUPPLEMENTATION
  9. ZINC [Concomitant]
     Indication: MINERAL SUPPLEMENTATION
  10. CO Q 10 [Concomitant]
     Indication: SUPPLEMENTATION THERAPY
  11. FISH OIL [Concomitant]
     Indication: SUPPLEMENTATION THERAPY

REACTIONS (2)
  - Deep vein thrombosis [Recovered/Resolved]
  - Overweight [Unknown]
